FAERS Safety Report 4862583-7 (Version None)
Quarter: 2005Q4

REPORT INFORMATION
  Report Type: 
  Country: None (occurrence: None)
  Receive Date: 20051219
  Receipt Date: 20051219
  Transmission Date: 20060501
  Serious: No
  Sender: FDA-Public Use
  Company Number: None

PATIENT
  Sex: Female

DRUGS (1)
  1. WARFARIN [Suspect]
     Indication: ATRIAL FIBRILLATION
     Dosage: VARIOUS DOSE

REACTIONS (3)
  - CONDITION AGGRAVATED [None]
  - DRUG LEVEL DECREASED [None]
  - GASTROINTESTINAL HAEMORRHAGE [None]
